FAERS Safety Report 4940899-3 (Version None)
Quarter: 2006Q1

REPORT INFORMATION
  Report Type: 
  Country: None (occurrence: None)
  Receive Date: 20060307
  Receipt Date: 20060222
  Transmission Date: 20060701
  Serious: Yes (Hospitalization)
  Sender: FDA-Public Use
  Company Number: 2006029528

PATIENT
  Age: 68 Year
  Sex: Male
  Weight: 83.9 kg

DRUGS (11)
  1. HEPARIN SODIUM [Suspect]
     Indication: ILL-DEFINED DISORDER
     Dosage: SEE IMAGE
     Route: 042
     Dates: start: 20050729, end: 20050729
  2. HEPARIN SODIUM [Suspect]
     Indication: ILL-DEFINED DISORDER
     Dosage: SEE IMAGE
     Route: 042
     Dates: start: 20050729, end: 20050729
  3. BIVALIRUDIN (BIVALIRUDIN) [Suspect]
     Indication: ILL-DEFINED DISORDER
     Dosage: SEE IMAGE
     Route: 042
     Dates: start: 20050729, end: 20050729
  4. BIVALIRUDIN (BIVALIRUDIN) [Suspect]
     Indication: ILL-DEFINED DISORDER
     Dosage: SEE IMAGE
     Route: 042
     Dates: start: 20050729, end: 20050729
  5. EPTIFIBATIDE (EPTIFIBATIDE) [Suspect]
     Indication: ILL-DEFINED DISORDER
     Dosage: SEE IMAGE
     Route: 042
     Dates: start: 20050729, end: 20050729
  6. EPTIFIBATIDE (EPTIFIBATIDE) [Suspect]
     Indication: ILL-DEFINED DISORDER
     Dosage: SEE IMAGE
     Route: 042
     Dates: start: 20050729, end: 20050730
  7. ASPIRIN [Concomitant]
  8. PROTONIX [Concomitant]
  9. ALEVE [Concomitant]
  10. VICODIN [Concomitant]
  11. PERCOCET [Concomitant]

REACTIONS (4)
  - ARTERIOVENOUS FISTULA [None]
  - CATHETER SITE HAEMATOMA [None]
  - PLATELET COUNT DECREASED [None]
  - VASCULAR PSEUDOANEURYSM [None]
